FAERS Safety Report 20682732 (Version 2)
Quarter: 2022Q2

REPORT INFORMATION
  Report Type: Spontaneous
  Country: FR (occurrence: FR)
  Receive Date: 20220407
  Receipt Date: 20220418
  Transmission Date: 20220720
  Serious: Yes (Life-Threatening, Hospitalization, Other)
  Sender: FDA-Public Use
  Company Number: FR-JAZZ-2022-FR-010242

PATIENT

DRUGS (6)
  1. VYXEOS [Suspect]
     Active Substance: CYTARABINE\DAUNORUBICIN
     Indication: Breast cancer
     Dosage: DANORUBICINE 44MG/ML, CYTARABINE 100MG/ML
     Route: 042
     Dates: start: 20220117
  2. POSACONAZOLE [Concomitant]
     Active Substance: POSACONAZOLE
     Indication: Prophylaxis
     Dosage: 300 MILLIGRAM
     Route: 048
     Dates: start: 20220117
  3. VALACYCLOVIR HYDROCHLORIDE [Concomitant]
     Active Substance: VALACYCLOVIR HYDROCHLORIDE
     Indication: Product used for unknown indication
     Dosage: 500 MILLIGRAM, BID
     Route: 048
  4. MEROPENEM [Concomitant]
     Active Substance: MEROPENEM
     Indication: Sepsis
  5. FUROSEMIDE [Concomitant]
     Active Substance: FUROSEMIDE
     Indication: Product used for unknown indication
     Dosage: 40 MILLIGRAM
     Route: 042
  6. PANTOPRAZOLE [Concomitant]
     Active Substance: PANTOPRAZOLE
     Indication: Product used for unknown indication

REACTIONS (7)
  - Resuscitation [Recovering/Resolving]
  - Pericarditis [Recovering/Resolving]
  - Acute kidney injury [Recovering/Resolving]
  - Ischaemic stroke [Recovering/Resolving]
  - Pyrexia [Recovering/Resolving]
  - Pleural effusion [Recovering/Resolving]
  - Off label use [Unknown]
